FAERS Safety Report 5772527-1 (Version None)
Quarter: 2008Q2

REPORT INFORMATION
  Report Type: 
  Country: None (occurrence: None)
  Receive Date: 20080601
  Receipt Date: 20080301
  Transmission Date: 20081010
  Serious: No
  Sender: FDA-Public Use
  Company Number: US200803000333

PATIENT
  Age: 56 Year
  Sex: Female

DRUGS (17)
  1. BYETTA [Suspect]
     Indication: TYPE 2 DIABETES MELLITUS
     Dosage: 5 UG, 2/D, SUBCUTANEOUS : 10 UG, 2/D, SUBCUTANEOUS
     Route: 058
     Dates: start: 20061001, end: 20060101
  2. EXENATIDE PEN, DISPOSABLE DEVICE (EXENATIDE PEN) PEN,DISPOSABLE [Concomitant]
  3. MICRONASE [Concomitant]
  4. GLUCOPHAGE [Concomitant]
  5. AVANDIA [Concomitant]
  6. SYNTHROID [Concomitant]
  7. ACCURETIC [Concomitant]
  8. ISOPRIN (VERAPAMIL HYDROCHLORIDE) [Concomitant]
  9. ZETIA [Concomitant]
  10. XALATAN [Concomitant]
  11. NEXIUM [Concomitant]
  12. PULMICORT [Concomitant]
  13. FLONASE [Concomitant]
  14. CLARITIN [Concomitant]
  15. TYLENOL ALLERGY SINUS (CHLORPHENAMINE MALEATE, PARACETAMOL, PSEUDOEPHE [Concomitant]
  16. PATANOL [Concomitant]
  17. LEVSIN (HYOSCYAMINE SULFATE) [Concomitant]

REACTIONS (4)
  - POLLAKIURIA [None]
  - URINARY SEDIMENT PRESENT [None]
  - URINARY TRACT INFECTION [None]
  - WEIGHT DECREASED [None]
